FAERS Safety Report 4931917-7 (Version None)
Quarter: 2006Q1

REPORT INFORMATION
  Report Type: 
  Country: None (occurrence: None)
  Receive Date: 20060303
  Receipt Date: 20050317
  Transmission Date: 20060701
  Serious: Yes (Hospitalization, Other)
  Sender: FDA-Public Use
  Company Number: US-MERCK-0503USA03470

PATIENT
  Age: 58 Year
  Sex: Male
  Weight: 100 kg

DRUGS (3)
  1. VIOXX [Suspect]
     Indication: ARTHRITIS
     Route: 048
     Dates: start: 20010101, end: 20040615
  2. VIOXX [Suspect]
     Indication: INTERVERTEBRAL DISC DEGENERATION
     Route: 048
     Dates: start: 20010101, end: 20040615
  3. ADVIL [Concomitant]
     Route: 065

REACTIONS (11)
  - AMBLYOPIA [None]
  - ARTERIAL OCCLUSIVE DISEASE [None]
  - ARTHROPATHY [None]
  - CORONARY ARTERY DISEASE [None]
  - DEAFNESS BILATERAL [None]
  - JOINT INJURY [None]
  - MYOCARDIAL INFARCTION [None]
  - NOCTURIA [None]
  - POLLAKIURIA [None]
  - RETINAL DETACHMENT [None]
  - SLEEP APNOEA SYNDROME [None]
